FAERS Safety Report 9113597 (Version 2)
Quarter: 2013Q2

REPORT INFORMATION
  Report Type: Spontaneous
  Country: FR (occurrence: FR)
  Receive Date: 20130208
  Receipt Date: 20130529
  Transmission Date: 20140414
  Serious: Yes (Other)
  Sender: FDA-Public Use
  Company Number: FR-ELI_LILLY_AND_COMPANY-FR201302000899

PATIENT
  Sex: Male

DRUGS (1)
  1. CYMBALTA [Suspect]
     Indication: INFLAMMATION
     Dosage: 60 MG, UNKNOWN

REACTIONS (6)
  - Syncope [Unknown]
  - Fall [Unknown]
  - Vertigo [Unknown]
  - Muscular weakness [Unknown]
  - Insomnia [Unknown]
  - Off label use [Recovered/Resolved]
